FAERS Safety Report 9856189 (Version 1)
Quarter: 2014Q1

REPORT INFORMATION
  Report Type: Spontaneous
  Country: MX (occurrence: MX)
  Receive Date: 20140130
  Receipt Date: 20140130
  Transmission Date: 20141002
  Serious: Yes (Death, Other)
  Sender: FDA-Public Use
  Company Number: PHHY2014MX010289

PATIENT
  Age: 93 Year
  Sex: Male

DRUGS (1)
  1. EXFORGE HCT [Suspect]
     Indication: HYPERTENSION
     Dosage: 1 TABLET (160/5/12.5 MG) DAILY
     Route: 048

REACTIONS (5)
  - Prostate cancer [Fatal]
  - Hypovolaemic shock [Fatal]
  - Gastrointestinal haemorrhage [Fatal]
  - Multi-organ failure [Fatal]
  - Urinary tract infection [Unknown]
